FAERS Safety Report 25614117 (Version 1)
Quarter: 2025Q3

REPORT INFORMATION
  Report Type: Report from Study
  Country: US (occurrence: US)
  Receive Date: 20250728
  Receipt Date: 20250728
  Transmission Date: 20251020
  Serious: Yes (Other)
  Sender: GILEAD
  Company Number: US-GILEAD-2025-0722110

PATIENT
  Age: 69 Year
  Sex: Female

DRUGS (1)
  1. TENOFOVIR ALAFENAMIDE [Suspect]
     Active Substance: TENOFOVIR ALAFENAMIDE
     Indication: Product used for unknown indication
     Route: 065

REACTIONS (5)
  - Hepatocellular carcinoma [Unknown]
  - Lipoprotein metabolism disorder [Unknown]
  - Abnormal loss of weight [Unknown]
  - Tumour marker abnormal [Unknown]
  - Immunology test abnormal [Unknown]
